FAERS Safety Report 8047791-9 (Version None)
Quarter: 2012Q1

REPORT INFORMATION
  Report Type: 
  Country: None (occurrence: None)
  Receive Date: 20120116
  Receipt Date: 20120109
  Transmission Date: 20120608
  Serious: Yes (Hospitalization, Other)
  Sender: FDA-Public Use
  Company Number: IT-ELI_LILLY_AND_COMPANY-IT201201002519

PATIENT
  Sex: Female

DRUGS (2)
  1. HUMALOG [Suspect]
     Dosage: 3 IU, TID
  2. HUMALOG [Suspect]
     Indication: TYPE 2 DIABETES MELLITUS
     Dosage: 15 IU, QD
     Route: 058
     Dates: start: 20100101, end: 20111223

REACTIONS (4)
  - BLOOD GLUCOSE INCREASED [None]
  - ENDOCARDITIS [None]
  - ANEURYSMECTOMY [None]
  - HYPOGLYCAEMIA [None]
